FAERS Safety Report 16096521 (Version 1)
Quarter: 2019Q1

REPORT INFORMATION
  Report Type: Spontaneous
  Country: HR (occurrence: HR)
  Receive Date: 20190320
  Receipt Date: 20190320
  Transmission Date: 20190418
  Serious: Yes (Hospitalization, Other)
  Sender: FDA-Public Use
  Company Number: HR-BAYER-2019-052215

PATIENT
  Age: 68 Year
  Sex: Female

DRUGS (7)
  1. SALMETEROL [Concomitant]
     Active Substance: SALMETEROL
  2. ASPIRIN PROTECT 100 MG [Suspect]
     Active Substance: ASPIRIN
  3. FUROSEMIDE. [Concomitant]
     Active Substance: FUROSEMIDE
  4. KALINOR [POTASSIUM BICARBONATE;POTASSIUM CITRATE] [Concomitant]
  5. AMLOPINE [Concomitant]
     Active Substance: AMLODIPINE BESYLATE
  6. ATORVASTATIN [Concomitant]
     Active Substance: ATORVASTATIN
  7. VALSARTAN. [Concomitant]
     Active Substance: VALSARTAN

REACTIONS (8)
  - Pulmonary embolism [None]
  - Deep vein thrombosis [None]
  - Asthenia [None]
  - Haemoptysis [None]
  - Dyspnoea [None]
  - Syncope [None]
  - Lung neoplasm malignant [None]
  - Anaemia [None]
